FAERS Safety Report 25123663 (Version 1)
Quarter: 2025Q1

REPORT INFORMATION
  Report Type: Spontaneous
  Country: HR (occurrence: HR)
  Receive Date: 20250326
  Receipt Date: 20250326
  Transmission Date: 20250408
  Serious: Yes (Hospitalization, Other)
  Sender: ACCORD
  Company Number: HR-Accord-475968

PATIENT
  Age: 44 Year
  Sex: Female

DRUGS (6)
  1. PACLITAXEL [Suspect]
     Active Substance: PACLITAXEL
     Indication: Hormone receptor positive breast cancer
     Dates: start: 2022, end: 202301
  2. TRASTUZUMAB [Suspect]
     Active Substance: TRASTUZUMAB
     Indication: Hormone receptor positive breast cancer
     Dates: start: 2022, end: 202301
  3. PERTUZUMAB [Suspect]
     Active Substance: PERTUZUMAB
     Indication: Hormone receptor positive breast cancer
     Dates: start: 2022, end: 202301
  4. TRASTUZUMAB [Suspect]
     Active Substance: TRASTUZUMAB
     Indication: HER2 positive breast cancer
     Dates: start: 2022, end: 202301
  5. PERTUZUMAB [Suspect]
     Active Substance: PERTUZUMAB
     Indication: HER2 positive breast cancer
     Dates: start: 2022, end: 202301
  6. PACLITAXEL [Suspect]
     Active Substance: PACLITAXEL
     Indication: HER2 positive breast cancer
     Dates: start: 2022, end: 202301

REACTIONS (1)
  - Cardiotoxicity [Recovering/Resolving]

NARRATIVE: CASE EVENT DATE: 20230201
